FAERS Safety Report 10269712 (Version 1)
Quarter: 2014Q2

REPORT INFORMATION
  Report Type: Spontaneous
  Country: GB (occurrence: None)
  Receive Date: 20140625
  Receipt Date: 20140625
  Transmission Date: 20141212
  Serious: Yes (Other)
  Sender: FDA-Public Use
  Company Number: GB-ALKEM-000614

PATIENT
  Age: 52 Year
  Sex: Female

DRUGS (4)
  1. QUETIAPINE (QUETIAPINE) [Suspect]
     Indication: SCHIZOPHRENIA, PARANOID TYPE
     Dosage: 200.00000000-MG-1.0 DAY?/ ORAL DAYS
     Route: 048
  2. CITALOPRAM (CITALOPRAM) [Suspect]
     Indication: SCHIZOPHRENIA, PARANOID TYPE
     Dosage: 40.00000000-MG-1.0D?/ ORAL
     Route: 048
  3. VALPROATE SODIUM (VALPROATE SODIUM) [Suspect]
     Indication: SCHIZOPHRENIA, PARANOID TYPE
     Dosage: 650.00000000-MG-1.0DAYS?/ ORAL
     Route: 048
  4. CLOZARIL (CLOZARIL) [Suspect]
     Indication: SCHIZOPHRENIA, PARANOID TYPE
     Dosage: 1300.00000000-MG-/ORAL
     Route: 048

REACTIONS (5)
  - Insomnia [None]
  - Neutrophil count increased [None]
  - Platelet count increased [None]
  - White blood cell count increased [None]
  - Intentional overdose [None]
